FAERS Safety Report 8543126-3 (Version None)
Quarter: 2012Q3

REPORT INFORMATION
  Report Type: 
  Country: None (occurrence: None)
  Receive Date: 20120727
  Receipt Date: 20120124
  Transmission Date: 20120928
  Serious: No
  Sender: FDA-Public Use
  Company Number: US-MYLANLABS-2012S1001955

PATIENT
  Age: 29 Year
  Sex: Female

DRUGS (4)
  1. VIIBRYD [Suspect]
     Indication: DEPRESSION
     Route: 048
     Dates: start: 20111209, end: 20111215
  2. VIIBRYD [Suspect]
     Route: 048
     Dates: start: 20111216, end: 20111227
  3. VIIBRYD [Suspect]
     Route: 048
     Dates: start: 20111228
  4. LEVOTHYROXINE SODIUM [Suspect]
     Indication: HYPOTHYROIDISM
     Dates: start: 20111209

REACTIONS (1)
  - DYSARTHRIA [None]
